FAERS Safety Report 7525516-0 (Version None)
Quarter: 2011Q2

REPORT INFORMATION
  Report Type: 
  Country: None (occurrence: None)
  Receive Date: 20110606
  Receipt Date: 20110601
  Transmission Date: 20111010
  Serious: Yes (Hospitalization, Other)
  Sender: FDA-Public Use
  Company Number: FI-PFIZER INC-2011118044

PATIENT
  Age: 70 Year
  Sex: Female

DRUGS (1)
  1. SULFASALAZINE [Suspect]
     Indication: RHEUMATOID ARTHRITIS
     Dosage: 1000 MG, 2X/DAY
     Route: 048
     Dates: start: 20110404, end: 20110423

REACTIONS (10)
  - DIARRHOEA [None]
  - HAEMATURIA [None]
  - ALANINE AMINOTRANSFERASE INCREASED [None]
  - PROTEINURIA [None]
  - LIVER DISORDER [None]
  - RASH PRURITIC [None]
  - HEPATIC ENZYME INCREASED [None]
  - INFECTION [None]
  - BLOOD ALKALINE PHOSPHATASE INCREASED [None]
  - RASH ERYTHEMATOUS [None]
